FAERS Safety Report 12229517 (Version 1)
Quarter: 2016Q1

REPORT INFORMATION
  Report Type: Spontaneous
  Country: US (occurrence: None)
  Receive Date: 20160331
  Receipt Date: 20160331
  Transmission Date: 20160526
  Serious: No
  Sender: FDA-Public Use
  Company Number: None

PATIENT
  Age: 78 Year
  Sex: Female

DRUGS (1)
  1. CAPECITABINE 500MG GENENTECH [Suspect]
     Active Substance: CAPECITABINE
     Indication: NEOPLASM MALIGNANT
     Dosage: 500MG 3 TABS TWICE DAILY FOR 7 DAYS PO
     Route: 048
     Dates: start: 20160204

REACTIONS (3)
  - Arthralgia [None]
  - Myalgia [None]
  - Peripheral swelling [None]

NARRATIVE: CASE EVENT DATE: 20160301
